FAERS Safety Report 5850080-1 (Version None)
Quarter: 2008Q3

REPORT INFORMATION
  Report Type: 
  Country: None (occurrence: None)
  Receive Date: 20080819
  Receipt Date: 20080808
  Transmission Date: 20090109
  Serious: Yes (Hospitalization)
  Sender: FDA-Public Use
  Company Number: US-AVENTIS-200812191US

PATIENT
  Sex: Male
  Weight: 127 kg

DRUGS (22)
  1. KETEK [Suspect]
     Indication: BRONCHITIS
     Dates: start: 20060901, end: 20060901
  2. PRILOSEC [Concomitant]
  3. ZYRTEC [Concomitant]
  4. FLONASE [Concomitant]
  5. LORAZEPAM [Concomitant]
  6. BENICAR HCT [Concomitant]
     Indication: HYPERTENSION
     Dosage: DOSE: UNK
  7. SUDAFED 12 HOUR [Concomitant]
     Dosage: DOSE: UNK
  8. SINGULAIR [Concomitant]
     Dosage: DOSE: UNK
  9. BENADRYL [Concomitant]
     Dosage: DOSE: UNK
  10. ALLEGRA [Concomitant]
     Dosage: DOSE: UNK
  11. PHENTERMINE [Concomitant]
     Dosage: DOSE: UNK
  12. ASPIRIN [Concomitant]
     Dosage: DOSE: UNK
  13. ASPIRIN [Concomitant]
     Indication: PAIN
     Dosage: DOSE: UNK
  14. IBUPROFEN [Concomitant]
     Indication: PAIN
     Dosage: DOSE: UNK
  15. MULTI-VITAMINS [Concomitant]
     Dosage: DOSE: UNK
  16. ELIDEL [Concomitant]
  17. BIAXIN [Concomitant]
     Dosage: DOSE: UNK
  18. ERYTHROMYCIN 2% [Concomitant]
     Dosage: DOSE: UNK
     Route: 061
  19. AMPHETAMINE AND DEXTROAMPHETAMINE SALTS [Concomitant]
     Dosage: DOSE: UNK
     Dates: start: 20061219
  20. AMOXICILLIN + CLAVULANATE POTASSIUM [Concomitant]
     Dosage: DOSE: UNK
     Dates: start: 20071003
  21. URSO                               /00465701/ [Concomitant]
     Dates: start: 20070911
  22. ROZEREM [Concomitant]
     Indication: INSOMNIA
     Dosage: DOSE: UNK

REACTIONS (7)
  - CHROMATURIA [None]
  - FAECES PALE [None]
  - FATIGUE [None]
  - HEPATIC ENZYME INCREASED [None]
  - HEPATITIS A ANTIBODY POSITIVE [None]
  - HEPATITIS CHRONIC ACTIVE [None]
  - JAUNDICE [None]
